FAERS Safety Report 14261608 (Version 1)
Quarter: 2017Q4

REPORT INFORMATION
  Report Type: Spontaneous
  Country: US (occurrence: US)
  Receive Date: 20171207
  Receipt Date: 20171207
  Transmission Date: 20180321
  Serious: Yes (Hospitalization, Disabling, Other)
  Sender: FDA-Public Use
  Company Number: None

PATIENT
  Sex: Male
  Weight: 13.5 kg

DRUGS (1)
  1. STEROIDS [Suspect]
     Active Substance: UNSPECIFIED INGREDIENT
     Indication: ECZEMA
     Dates: start: 20141112, end: 20160210

REACTIONS (3)
  - Pruritus [None]
  - Skin haemorrhage [None]
  - Withdrawal syndrome [None]

NARRATIVE: CASE EVENT DATE: 20141112
